FAERS Safety Report 5825799-9 (Version None)
Quarter: 2008Q3

REPORT INFORMATION
  Report Type: 
  Country: None (occurrence: None)
  Receive Date: 20080729
  Receipt Date: 20080723
  Transmission Date: 20090109
  Serious: Yes (Disabling, Other)
  Sender: FDA-Public Use
  Company Number: GB-WYE-G01316908

PATIENT
  Sex: Female
  Weight: 49 kg

DRUGS (1)
  1. SIROLIMUS [Suspect]
     Indication: RENAL CANCER
     Dosage: UNKNOWN
     Route: 048
     Dates: start: 20031101, end: 20071203

REACTIONS (2)
  - ANGIOEDEMA [None]
  - LYMPHOEDEMA [None]
